FAERS Safety Report 15751681 (Version 1)
Quarter: 2018Q4

REPORT INFORMATION
  Report Type: Spontaneous
  Country: DE (occurrence: DE)
  Receive Date: 20181221
  Receipt Date: 20181221
  Transmission Date: 20190205
  Serious: Yes (Hospitalization, Other)
  Sender: FDA-Public Use
  Company Number: DE-IPSEN BIOPHARMACEUTICALS, INC.-2018-19563

PATIENT
  Age: 82 Year
  Sex: Male
  Weight: 78 kg

DRUGS (31)
  1. FLUOROURACIL. [Suspect]
     Active Substance: FLUOROURACIL
     Route: 042
  2. FLUOROURACIL. [Suspect]
     Active Substance: FLUOROURACIL
     Route: 042
  3. FOLINIC ACID [Suspect]
     Active Substance: LEUCOVORIN
  4. ONIVYDE [Suspect]
     Active Substance: IRINOTECAN HYDROCHLORIDE
     Indication: COLORECTAL CANCER METASTATIC
  5. ONIVYDE [Suspect]
     Active Substance: IRINOTECAN HYDROCHLORIDE
     Indication: OFF LABEL USE
  6. FLUOROURACIL. [Suspect]
     Active Substance: FLUOROURACIL
     Route: 042
  7. PANITUMUMAB [Suspect]
     Active Substance: PANITUMUMAB
     Indication: COLORECTAL CANCER METASTATIC
     Route: 042
  8. ONDANSETRON B BRAUN [Concomitant]
  9. ONIVYDE [Suspect]
     Active Substance: IRINOTECAN HYDROCHLORIDE
  10. FLUOROURACIL. [Suspect]
     Active Substance: FLUOROURACIL
     Route: 042
  11. FLUOROURACIL. [Suspect]
     Active Substance: FLUOROURACIL
     Route: 042
  12. FLUOROURACIL. [Suspect]
     Active Substance: FLUOROURACIL
     Route: 042
  13. PANITUMUMAB [Suspect]
     Active Substance: PANITUMUMAB
     Route: 042
  14. FLUOROURACIL. [Suspect]
     Active Substance: FLUOROURACIL
     Route: 042
  15. FOLINIC ACID [Suspect]
     Active Substance: LEUCOVORIN
  16. DERMATOP [Concomitant]
     Active Substance: PREDNICARBATE
  17. ONIVYDE [Suspect]
     Active Substance: IRINOTECAN HYDROCHLORIDE
  18. FLUOROURACIL. [Suspect]
     Active Substance: FLUOROURACIL
     Route: 042
  19. PANITUMUMAB [Suspect]
     Active Substance: PANITUMUMAB
     Route: 042
  20. FOLINIC ACID [Suspect]
     Active Substance: LEUCOVORIN
  21. ONIVYDE [Suspect]
     Active Substance: IRINOTECAN HYDROCHLORIDE
  22. FLUOROURACIL. [Suspect]
     Active Substance: FLUOROURACIL
     Route: 042
  23. FLUOROURACIL. [Suspect]
     Active Substance: FLUOROURACIL
     Route: 042
  24. PANITUMUMAB [Suspect]
     Active Substance: PANITUMUMAB
     Route: 042
  25. FOLINIC ACID [Suspect]
     Active Substance: LEUCOVORIN
     Indication: COLORECTAL CANCER METASTATIC
  26. FLUOROURACIL. [Suspect]
     Active Substance: FLUOROURACIL
     Route: 042
  27. FOLINIC ACID [Suspect]
     Active Substance: LEUCOVORIN
  28. FOLINIC ACID [Suspect]
     Active Substance: LEUCOVORIN
  29. FLUOROURACIL. [Suspect]
     Active Substance: FLUOROURACIL
     Indication: COLORECTAL CANCER METASTATIC
     Route: 042
  30. PANITUMUMAB [Suspect]
     Active Substance: PANITUMUMAB
     Route: 042
  31. TN UNSPECIFIED [Concomitant]
     Active Substance: TROLNITRATE
     Dates: start: 20010101

REACTIONS (1)
  - Pulmonary embolism [Not Recovered/Not Resolved]
